FAERS Safety Report 15617801 (Version 1)
Quarter: 2018Q4

REPORT INFORMATION
  Report Type: Spontaneous
  Country: GB (occurrence: ES)
  Receive Date: 20181114
  Receipt Date: 20181114
  Transmission Date: 20190205
  Serious: Yes (Hospitalization)
  Sender: FDA-Public Use
  Company Number: ES-FRESENIUS KABI-FK201811537

PATIENT
  Age: 69 Year
  Sex: Female

DRUGS (4)
  1. CEFTAZIDIME (MANUFACTURER UNKNOWN) [Suspect]
     Active Substance: CEFTAZIDIME
     Indication: INFECTION PROPHYLAXIS
     Route: 042
     Dates: start: 20180920, end: 20180920
  2. CLAVULANATE POTASSIUM/AMOXICILLIN TRIHYDRATE [Suspect]
     Active Substance: AMOXICILLIN\CLAVULANATE POTASSIUM
     Indication: INFECTION PROPHYLAXIS
     Route: 042
     Dates: start: 20180920, end: 20180920
  3. MEROPENEM (MANUFACTURER UNKNOWN) [Suspect]
     Active Substance: MEROPENEM
     Indication: PYREXIA
     Route: 042
     Dates: start: 20180920, end: 20180926
  4. FUROSEMIDE (MANUFACTURER UNKNOWN) [Suspect]
     Active Substance: FUROSEMIDE
     Indication: PRODUCT USED FOR UNKNOWN INDICATION
     Route: 042
     Dates: start: 20180920, end: 20180928

REACTIONS (2)
  - Hyperbilirubinaemia [Recovered/Resolved]
  - Hepatitis [Recovered/Resolved]

NARRATIVE: CASE EVENT DATE: 20180925
